FAERS Safety Report 10665965 (Version 1)
Quarter: 2014Q4

REPORT INFORMATION
  Report Type: Spontaneous
  Country: US (occurrence: US)
  Receive Date: 20141219
  Receipt Date: 20141219
  Transmission Date: 20150529
  Serious: Yes (Other)
  Sender: FDA-Public Use
  Company Number: ALCN2014US007062

PATIENT
  Age: 15 Year
  Sex: Male

DRUGS (1)
  1. TOBRAMYCIN AND DEXAMETHASONE [Suspect]
     Active Substance: DEXAMETHASONE\TOBRAMYCIN
     Indication: FOREIGN BODY SENSATION IN EYES
     Dosage: 1 DF, TID
     Route: 047

REACTIONS (1)
  - Keratitis fungal [Recovered/Resolved]
